FAERS Safety Report 25178577 (Version 1)
Quarter: 2025Q2

REPORT INFORMATION
  Report Type: Other
  Country: US (occurrence: US)
  Receive Date: 20250409
  Receipt Date: 20250409
  Transmission Date: 20250716
  Serious: Yes (Hospitalization)
  Sender: ITALFARMACO
  Company Number: US-ITALFARMACO SPA-2174527

PATIENT
  Age: 17 Year
  Sex: Male
  Weight: 74.08 kg

DRUGS (19)
  1. DUVYZAT [Suspect]
     Active Substance: GIVINOSTAT
     Indication: Duchenne muscular dystrophy
  2. METHADONE [Concomitant]
     Active Substance: METHADONE HYDROCHLORIDE
  3. ZOLOFT [Concomitant]
     Active Substance: SERTRALINE HYDROCHLORIDE
  4. QELBREE [Concomitant]
     Active Substance: VILOXAZINE HYDROCHLORIDE
  5. CALCIUM CARBONATE (ANTACID) [Concomitant]
     Active Substance: CALCIUM CARBONATE
  6. LIDODERM [Concomitant]
     Active Substance: LIDOCAINE
  7. DULERA [Concomitant]
     Active Substance: FORMOTEROL FUMARATE DIHYDRATE\MOMETASONE FUROATE
  8. DUONEB [Concomitant]
     Active Substance: ALBUTEROL SULFATE\IPRATROPIUM BROMIDE
  9. BUPRENORPHINE [Concomitant]
     Active Substance: BUPRENORPHINE
  10. VITAMIN D [Concomitant]
     Active Substance: VITAMIN D NOS
  11. LORATADINE [Concomitant]
     Active Substance: LORATADINE
  12. HYDROXYZINE [Concomitant]
     Active Substance: HYDROXYZINE HYDROCHLORIDE
  13. SIMETHICONE (DIMETHICONE) [Concomitant]
     Active Substance: DIMETHICONE
  14. DEFLAZACORT [Concomitant]
     Active Substance: DEFLAZACORT
  15. OMEPRAZOLE [Concomitant]
     Active Substance: OMEPRAZOLE
  16. MAGNESIUM OXIDE [Concomitant]
     Active Substance: MAGNESIUM OXIDE
  17. IBUPROFEN [Concomitant]
     Active Substance: IBUPROFEN
  18. TAMSULOSIN [Concomitant]
     Active Substance: TAMSULOSIN
  19. GABAPENTIN [Concomitant]
     Active Substance: GABAPENTIN

REACTIONS (6)
  - Constipation [Not Recovered/Not Resolved]
  - Ill-defined disorder [Unknown]
  - Myalgia [Not Recovered/Not Resolved]
  - Back pain [Not Recovered/Not Resolved]
  - Dizziness [Not Recovered/Not Resolved]
  - Headache [Not Recovered/Not Resolved]
